FAERS Safety Report 9169922 (Version 1)
Quarter: 2013Q1

REPORT INFORMATION
  Report Type: Spontaneous
  Country: US (occurrence: None)
  Receive Date: 20130307
  Receipt Date: 20130307
  Transmission Date: 20140127
  Serious: Yes (Hospitalization)
  Sender: FDA-Public Use
  Company Number: 13AE004

PATIENT
  Age: 48 Year
  Sex: Female

DRUGS (2)
  1. APAP 500MG, CAFFEINE 60MG, PYRILAMINE MALEATE 15MG [Suspect]
     Indication: MUSCLE SPASMS
     Route: 048
     Dates: start: 20121127
  2. APAP 500MG, CAFFEINE 60MG, PYRILAMINE MALEATE 15MG [Suspect]
     Indication: FATIGUE
     Route: 048
     Dates: start: 20121127

REACTIONS (7)
  - Irritability [None]
  - Agitation [None]
  - Agitation [None]
  - Heart rate increased [None]
  - Nervousness [None]
  - Dehydration [None]
  - Dystonia [None]
